FAERS Safety Report 5926378-5 (Version None)
Quarter: 2008Q4

REPORT INFORMATION
  Report Type: 
  Country: None (occurrence: None)
  Receive Date: 20081022
  Receipt Date: 20081016
  Transmission Date: 20090506
  Serious: Yes (Hospitalization)
  Sender: FDA-Public Use
  Company Number: IT-TEVA-178788ISR

PATIENT
  Sex: Female

DRUGS (2)
  1. MESALAMINE [Suspect]
  2. DICLOFENAC [Suspect]

REACTIONS (1)
  - RECTAL HAEMORRHAGE [None]
